FAERS Safety Report 10071610 (Version 3)
Quarter: 2015Q1

REPORT INFORMATION
  Report Type: Report from Study
  Country: RU (occurrence: RU)
  Receive Date: 20140410
  Receipt Date: 20150130
  Transmission Date: 20150720
  Serious: Yes (Other)
  Sender: FDA-Public Use
  Company Number: RU-ROCHE-1381714

PATIENT
  Age: 57 Year
  Sex: Male
  Weight: 105 kg

DRUGS (12)
  1. FLUOROURACIL. [Concomitant]
     Active Substance: FLUOROURACIL
     Indication: RECTAL CANCER
     Dosage: ON DAYS 1 AND 2 EVERY 2 WEEKS
     Route: 040
     Dates: start: 20140410
  2. IRINOTECAN [Concomitant]
     Active Substance: IRINOTECAN
     Indication: RECTAL CANCER
     Dosage: ON 1ST DAY EVERY 2 WEEKS, 90 MINUTES INFUSION
     Route: 042
     Dates: start: 20140729, end: 20141124
  3. AVASTIN [Suspect]
     Active Substance: BEVACIZUMAB
     Indication: METASTASES TO LIVER
     Route: 065
     Dates: start: 20140410
  4. OXALIPLATIN. [Concomitant]
     Active Substance: OXALIPLATIN
     Dosage: ON 1ST DAY EVERY 2 WEEKS,   INFUSION FOR 2 HOURS
     Route: 042
     Dates: start: 20140410, end: 20140729
  5. LEUCOVORIN [Concomitant]
     Active Substance: LEUCOVORIN
     Indication: RECTAL CANCER
     Dosage: ON DAYS 1 AND 2 EVERY 2 WEEKS,  2 HOURS INFUSION
     Route: 042
     Dates: start: 20140410
  6. XELODA [Suspect]
     Active Substance: CAPECITABINE
     Dosage: 1-14 DAYS EVERY THREE WEEKS.
     Route: 048
     Dates: start: 20150129
  7. AVASTIN [Suspect]
     Active Substance: BEVACIZUMAB
     Route: 065
     Dates: start: 20150129
  8. XELODA [Suspect]
     Active Substance: CAPECITABINE
     Indication: METASTASES TO LIVER
     Dosage: 1-14 DAYS EVERY THREE WEEKS.
     Route: 048
     Dates: start: 20131230, end: 20140410
  9. FLUOROURACIL. [Concomitant]
     Active Substance: FLUOROURACIL
     Indication: METASTASES TO LIVER
     Dosage: ON DAYS 1 AND 2 EVERY 2 WEEKS
     Route: 042
     Dates: start: 20140410
  10. IRINOTECAN [Concomitant]
     Active Substance: IRINOTECAN
     Dosage: ON 1ST DAY
     Route: 042
     Dates: start: 20150129
  11. AVASTIN [Suspect]
     Active Substance: BEVACIZUMAB
     Indication: RECTAL CANCER
     Route: 065
     Dates: start: 20130916
  12. XELODA [Suspect]
     Active Substance: CAPECITABINE
     Indication: RECTAL CANCER
     Dosage: 1-14 DAYS
     Route: 048
     Dates: start: 20130916

REACTIONS (1)
  - Disease progression [Not Recovered/Not Resolved]

NARRATIVE: CASE EVENT DATE: 20140312
